FAERS Safety Report 4866969-6 (Version None)
Quarter: 2005Q4

REPORT INFORMATION
  Report Type: 
  Country: None (occurrence: None)
  Receive Date: 20051222
  Receipt Date: 20051219
  Transmission Date: 20060501
  Serious: Yes (Hospitalization)
  Sender: FDA-Public Use
  Company Number: 200514365GDS

PATIENT
  Age: 10 Month
  Sex: Male
  Weight: 10 kg

DRUGS (3)
  1. ASPIRIN [Suspect]
     Indication: KAWASAKI'S DISEASE
     Dosage: SEE IMAGE, ORAL
     Route: 048
  2. IMMUNOGLOBULIN (IVIG) [Concomitant]
  3. CEFOTAXIME [Concomitant]

REACTIONS (8)
  - BLOOD CULTURE POSITIVE [None]
  - CITROBACTER INFECTION [None]
  - HEPATIC STEATOSIS [None]
  - INTERCOSTAL RETRACTION [None]
  - KETONURIA [None]
  - REYE'S SYNDROME [None]
  - THROMBOCYTHAEMIA [None]
  - URINE LACTIC ACID INCREASED [None]
